FAERS Safety Report 10015861 (Version 7)
Quarter: 2015Q2

REPORT INFORMATION
  Report Type: Spontaneous
  Country: US (occurrence: US)
  Receive Date: 20140317
  Receipt Date: 20150508
  Transmission Date: 20150821
  Serious: Yes (Hospitalization, Other)
  Sender: FDA-Public Use
  Company Number: US-GLAXOSMITHKLINE-A1065179A

PATIENT
  Age: 9 Year
  Sex: Female
  Weight: 18 kg

DRUGS (10)
  1. PEPCID [Concomitant]
     Active Substance: FAMOTIDINE
     Dosage: ^8 MG (1 MG)^
     Route: 050
  2. REMODULIN [Concomitant]
     Active Substance: TREPROSTINIL
  3. SINGULAIR [Concomitant]
     Active Substance: MONTELUKAST SODIUM
     Route: 050
  4. FLOLAN [Suspect]
     Active Substance: EPOPROSTENOL SODIUM
     Dosage: UNK
     Dates: start: 20071212
  5. PULMICORT TURBUHALER [Concomitant]
     Active Substance: BUDESONIDE
     Route: 055
  6. FLOLAN [Suspect]
     Active Substance: EPOPROSTENOL SODIUM
     Indication: PULMONARY ARTERIAL HYPERTENSION
     Dosage: 101.2 NG/KG/MIN CONTINUOUS30,000 NG/ML CONCENTRATION1.5 MG VIAL STRENGTH
     Route: 042
     Dates: start: 20071212
  7. FLOLAN [Suspect]
     Active Substance: EPOPROSTENOL SODIUM
     Dosage: 105.7 NG/KG/MIN CONTINUOUSLY; CONCENTRATION: 30,000 NG/ML; PUMP RATE: 91 ML/DAY; VIAL STRENGTH:1.5MG
     Dates: start: 20071212
  8. LASIX [Concomitant]
     Active Substance: FUROSEMIDE
     Route: 050
  9. FLOLAN [Suspect]
     Active Substance: EPOPROSTENOL SODIUM
     Dosage: 99 NG/KG/MIN CONTINUOUSLY
     Route: 042
  10. COUMADIN [Suspect]
     Active Substance: WARFARIN SODIUM
     Dosage: 2 MG MONDAY AND THURSDAY3 MG TUESDAY, WEDNESDAY, FRIDAY, SATURDAY, SUNDAY
     Route: 050

REACTIONS (19)
  - Cerebrovascular accident [Recovering/Resolving]
  - Seizure [Recovering/Resolving]
  - Infarction [Recovering/Resolving]
  - Blood electrolytes abnormal [Recovering/Resolving]
  - Pain in extremity [Recovering/Resolving]
  - Pneumococcal infection [Recovering/Resolving]
  - Presyncope [Recovering/Resolving]
  - Influenza [Unknown]
  - Dysarthria [Recovering/Resolving]
  - Asthenia [Recovering/Resolving]
  - Mental status changes [Recovering/Resolving]
  - Cholelithiasis [Unknown]
  - Pneumonia [Unknown]
  - Sepsis [Recovering/Resolving]
  - Pyrexia [Unknown]
  - Vomiting [Recovering/Resolving]
  - Device related infection [Recovering/Resolving]
  - Diarrhoea [Unknown]
  - Pulmonary hypertension [Recovering/Resolving]

NARRATIVE: CASE EVENT DATE: 20140226
